FAERS Safety Report 8152175-9 (Version None)
Quarter: 2012Q1

REPORT INFORMATION
  Report Type: 
  Country: None (occurrence: None)
  Receive Date: 20120221
  Receipt Date: 20120214
  Transmission Date: 20120608
  Serious: Yes (Other)
  Sender: FDA-Public Use
  Company Number: GB-PFIZER INC-2012040367

PATIENT
  Age: 3 Year
  Sex: Female

DRUGS (1)
  1. CHLORAMPHENICOL SODIUM SUCCINATE [Suspect]
     Indication: CONJUNCTIVITIS
     Dosage: 1 DF, 4X/DAY
     Route: 047
     Dates: start: 20120202, end: 20120202

REACTIONS (1)
  - HAEMORRHAGE [None]
